FAERS Safety Report 22333458 (Version 1)
Quarter: 2023Q2

REPORT INFORMATION
  Report Type: Spontaneous
  Country: US (occurrence: US)
  Receive Date: 20230517
  Receipt Date: 20230517
  Transmission Date: 20230722
  Serious: No
  Sender: FDA-Public Use
  Company Number: US-APIL-2310429US

PATIENT
  Age: 40 Year
  Sex: Female

DRUGS (1)
  1. KYBELLA [Suspect]
     Active Substance: DEOXYCHOLIC ACID
     Indication: Lipolysis procedure
     Dosage: UNK, SINGLE
     Dates: start: 20230327, end: 20230327

REACTIONS (4)
  - Inflammation [Unknown]
  - Erythema [Unknown]
  - Skin swelling [Unknown]
  - Skin warm [Unknown]

NARRATIVE: CASE EVENT DATE: 20230328
